FAERS Safety Report 8719637 (Version 2)
Quarter: 2012Q4

REPORT INFORMATION
  Report Type: 
  Country: JP (occurrence: JP)
  Receive Date: 20120813
  Receipt Date: 20120907
  Transmission Date: 20130627
  Serious: Yes (Other)
  Sender: FDA-Public Use
  Company Number: JP-GENZYME-FABR-1002682

PATIENT
  Sex: Female
  Weight: 48 kg

DRUGS (2)
  1. FABRAZYME [Suspect]
     Indication: FABRY^S DISEASE
     Dosage: 50 mg, q2w
     Route: 042
     Dates: start: 20060926, end: 20091104
  2. FABRAZYME [Suspect]
     Dosage: UNK
     Route: 042
     Dates: start: 20091118

REACTIONS (2)
  - Fabry^s disease [Unknown]
  - Cardiac hypertrophy [Unknown]
